FAERS Safety Report 10422352 (Version 1)
Quarter: 2014Q3

REPORT INFORMATION
  Report Type: Spontaneous
  Country: CN (occurrence: CN)
  Receive Date: 20140901
  Receipt Date: 20140901
  Transmission Date: 20150326
  Serious: Yes (Hospitalization)
  Sender: FDA-Public Use
  Company Number: PHHY2014CN107816

PATIENT
  Age: 44 Year
  Sex: Male
  Weight: 87 kg

DRUGS (4)
  1. TRILEPTAL [Suspect]
     Active Substance: OXCARBAZEPINE
     Dosage: 0.15 G, QD
     Route: 048
     Dates: start: 20121202
  2. FOLIC ACID. [Suspect]
     Active Substance: FOLIC ACID
     Indication: FOLATE DEFICIENCY
     Dosage: 5 MG, BID
     Route: 048
     Dates: start: 20121205, end: 20121209
  3. DEPAKINE [Concomitant]
     Active Substance: VALPROATE SODIUM
     Dosage: 0.5 G, TID
     Route: 048
     Dates: start: 20121202, end: 20121212
  4. TRILEPTAL [Suspect]
     Active Substance: OXCARBAZEPINE
     Dosage: 0.15 G, BID
     Dates: end: 20121212

REACTIONS (2)
  - Rash [Recovering/Resolving]
  - Erythema [Recovered/Resolved]

NARRATIVE: CASE EVENT DATE: 20121212
